FAERS Safety Report 25922788 (Version 1)
Quarter: 2025Q4

REPORT INFORMATION
  Report Type: Spontaneous
  Country: EU (occurrence: EU)
  Receive Date: 20251015
  Receipt Date: 20251015
  Transmission Date: 20260117
  Serious: Yes (Other)
  Sender: AUROBINDO
  Company Number: EU-LRB-01086398

PATIENT
  Age: 67 Year
  Sex: Male
  Weight: 85 kg

DRUGS (5)
  1. SOLIFENACIN [Suspect]
     Active Substance: SOLIFENACIN
     Indication: Bladder disorder
     Dosage: 5 MILLIGRAM, ONCE A DAY
     Route: 048
     Dates: start: 20250905, end: 20250909
  2. RIVAROXABAN [Concomitant]
     Active Substance: RIVAROXABAN
     Indication: Product used for unknown indication
     Dosage: TABLET, 20 MG (MILLIGRAM)
     Route: 048
  3. CLOPIDOGREL [Concomitant]
     Active Substance: CLOPIDOGREL BISULFATE
     Indication: Product used for unknown indication
     Dosage: TABLET, 75 MG (MILLIGRAM)
     Route: 048
  4. NICARDIPINE [Concomitant]
     Active Substance: NICARDIPINE
     Indication: Product used for unknown indication
     Dosage: CAPSULE 50 MG, 2D1
     Route: 065
  5. SIMVASTATIN [Concomitant]
     Active Substance: SIMVASTATIN
     Indication: Product used for unknown indication
     Dosage: UNK
     Route: 048

REACTIONS (3)
  - Arrhythmia [Recovered/Resolved]
  - Tachycardia [Recovered/Resolved]
  - Balance disorder [Recovered/Resolved]
